FAERS Safety Report 5857179-4 (Version None)
Quarter: 2008Q3

REPORT INFORMATION
  Report Type: 
  Country: None (occurrence: None)
  Receive Date: 20080825
  Receipt Date: 20080819
  Transmission Date: 20090109
  Serious: Yes (Hospitalization, Disabling)
  Sender: FDA-Public Use
  Company Number: PHEH2008US05907

PATIENT
  Sex: Female
  Weight: 46.2 kg

DRUGS (10)
  1. TOBI [Suspect]
     Indication: BRONCHIECTASIS
     Dosage: 300 MG, BID
     Dates: start: 20051001, end: 20081001
  2. ATENOLOL [Concomitant]
     Dosage: 50 MG, Q8H
  3. SYNTHROID [Concomitant]
     Dosage: 50 UG, QD
  4. VITAMIN D [Concomitant]
     Dosage: 400 MG, QD
  5. CALCIUM [Concomitant]
     Dosage: 200 MG, QD
  6. BONIVA [Concomitant]
     Dosage: 3 MG, Q3MO
  7. ALPRAZOZAM [Concomitant]
     Dosage: .25 MG, PRN
  8. ALBUTEROL [Concomitant]
     Dosage: .25 MG, QD-QID
  9. MEMANTINE HCL [Concomitant]
     Dosage: UNK
  10. MULTIVITAMIN ^LAPPE^ [Concomitant]
     Dosage: 1

REACTIONS (5)
  - AMNESIA [None]
  - BLOOD CREATININE INCREASED [None]
  - BLOOD TEST ABNORMAL [None]
  - DEAFNESS [None]
  - RENAL IMPAIRMENT [None]
